FAERS Safety Report 11454841 (Version 2)
Quarter: 2015Q3

REPORT INFORMATION
  Report Type: Spontaneous
  Country: US (occurrence: US)
  Receive Date: 20150903
  Receipt Date: 20150904
  Transmission Date: 20151125
  Serious: Yes (Other)
  Sender: FDA-Public Use
  Company Number: PHEH2015US016977

PATIENT
  Age: 33 Year
  Sex: Male

DRUGS (13)
  1. PERIDEX [Concomitant]
     Active Substance: CHLORHEXIDINE GLUCONATE
     Indication: PRODUCT USED FOR UNKNOWN INDICATION
     Dosage: SWISH AND SPIT 15 ML TWO TIMES A DAY. SWISH FOR 30 SECONDS THEN SPIT, DO NOT SWALLOW
     Route: 065
  2. SUTENT [Suspect]
     Active Substance: SUNITINIB MALATE
     Dosage: UNK
     Route: 048
     Dates: start: 20121109, end: 20150207
  3. ZOMETA [Suspect]
     Active Substance: ZOLEDRONIC ACID
     Indication: THYMIC CANCER METASTATIC
     Dosage: UNK
     Route: 065
     Dates: end: 201010
  4. CARBOPLATIN. [Suspect]
     Active Substance: CARBOPLATIN
     Indication: THYMIC CANCER METASTATIC
     Dosage: UNK
     Route: 065
     Dates: end: 201010
  5. CARBOPLATIN. [Suspect]
     Active Substance: CARBOPLATIN
     Dosage: UNK
     Route: 065
     Dates: start: 20110908
  6. GEMCITABINE [Suspect]
     Active Substance: GEMCITABINE\GEMCITABINE HYDROCHLORIDE
     Dosage: UNK, MAINTENANCE THERAPY
     Route: 065
     Dates: start: 20120524
  7. MULTI VITAMIN [Concomitant]
     Active Substance: VITAMINS
     Indication: PRODUCT USED FOR UNKNOWN INDICATION
     Dosage: 1 DF, PRN
     Route: 048
  8. SUTENT [Suspect]
     Active Substance: SUNITINIB MALATE
     Indication: THYMIC CANCER METASTATIC
     Dosage: 50 MG X 14 DAYS, 7 DAYS OFF
     Route: 048
     Dates: start: 20120911
  9. VITAMIN D3 [Concomitant]
     Active Substance: CHOLECALCIFEROL
     Indication: PRODUCT USED FOR UNKNOWN INDICATION
     Dosage: 2000 U, QD
     Route: 048
  10. GEMCITABINE [Suspect]
     Active Substance: GEMCITABINE\GEMCITABINE HYDROCHLORIDE
     Indication: THYMIC CANCER METASTATIC
     Dosage: UNK
     Route: 065
  11. DOCETAXEL. [Suspect]
     Active Substance: DOCETAXEL
     Indication: THYMIC CANCER METASTATIC
     Dosage: UNK
     Route: 065
     Dates: end: 201010
  12. GEMCITABINE [Suspect]
     Active Substance: GEMCITABINE\GEMCITABINE HYDROCHLORIDE
     Dosage: UNK
     Route: 065
     Dates: start: 20110908, end: 20120112
  13. IBUPROFEN. [Concomitant]
     Active Substance: IBUPROFEN
     Indication: PRODUCT USED FOR UNKNOWN INDICATION
     Dosage: UNK UNK, PRN
     Route: 065

REACTIONS (20)
  - Rhabdomyolysis [Recovering/Resolving]
  - Myoglobin blood increased [Unknown]
  - Chronic kidney disease [Recovering/Resolving]
  - Osteonecrosis of jaw [Unknown]
  - Oral pain [Recovering/Resolving]
  - Erythema [Unknown]
  - Pain in extremity [Unknown]
  - Myalgia [Unknown]
  - Jaw disorder [Unknown]
  - Blood creatine phosphokinase increased [Recovering/Resolving]
  - Off label use [Unknown]
  - Musculoskeletal pain [Unknown]
  - Thymic cancer metastatic [Unknown]
  - Cytopenia [Unknown]
  - Aspartate aminotransferase increased [Unknown]
  - Metastases to pelvis [Unknown]
  - Metastases to bone [Unknown]
  - Gingival swelling [Not Recovered/Not Resolved]
  - Malignant neoplasm progression [Unknown]
  - Anaemia [Unknown]

NARRATIVE: CASE EVENT DATE: 20111029
